FAERS Safety Report 7990781-2 (Version None)
Quarter: 2011Q4

REPORT INFORMATION
  Report Type: 
  Country: None (occurrence: None)
  Receive Date: 20111219
  Receipt Date: 20111215
  Transmission Date: 20120403
  Serious: Yes (Death)
  Sender: FDA-Public Use
  Company Number: VE-PFIZER INC-2011280508

PATIENT
  Age: 93 Year
  Sex: Female

DRUGS (3)
  1. LIPITOR [Suspect]
     Indication: HYPERCHOLESTEROLAEMIA
     Dosage: UNK
     Route: 048
     Dates: start: 20100101, end: 20100101
  2. DIGOXIN [Concomitant]
     Indication: ARRHYTHMIA
     Dosage: UNK
     Route: 048
  3. BLOKIUM [Concomitant]
     Indication: HYPERTENSION
     Dosage: 50 MG, UNK
     Route: 048

REACTIONS (1)
  - CEREBROVASCULAR ACCIDENT [None]
